FAERS Safety Report 6558224-3 (Version None)
Quarter: 2010Q1

REPORT INFORMATION
  Report Type: 
  Country: None (occurrence: None)
  Receive Date: 20100127
  Receipt Date: 20100127
  Transmission Date: 20100710
  Serious: Yes (Hospitalization)
  Sender: FDA-Public Use
  Company Number: None

PATIENT
  Age: 29 Year
  Sex: Female
  Weight: 84 kg

DRUGS (4)
  1. QUINAPRIL [Suspect]
     Indication: HYPERTENSION
     Dosage: 80MG DAILY PO, CHRONIC (MANY YRS)
     Route: 048
  2. VERAPAMIL ER [Concomitant]
  3. KETOCONAZOLE [Concomitant]
  4. SELENIUM SULFIDE [Concomitant]

REACTIONS (1)
  - LIP SWELLING [None]
